FAERS Safety Report 24372882 (Version 1)
Quarter: 2024Q3

REPORT INFORMATION
  Report Type: Spontaneous
  Country: CA (occurrence: CA)
  Receive Date: 20240927
  Receipt Date: 20240927
  Transmission Date: 20241016
  Serious: Yes (Life-Threatening)
  Sender: EISAI
  Company Number: CA-Eisai-EC-2024-175197

PATIENT
  Age: 43 Year
  Sex: Male
  Weight: 53 kg

DRUGS (1)
  1. DAYVIGO [Suspect]
     Active Substance: LEMBOREXANT
     Indication: Sleep disorder
     Dosage: DOSE UNKNOWN
     Route: 048

REACTIONS (7)
  - Paralysis [Recovered/Resolved]
  - Abdominal pain [Recovered/Resolved]
  - Aphasia [Recovered/Resolved]
  - Dizziness [Recovered/Resolved]
  - Hallucination [Recovered/Resolved]
  - Nightmare [Recovered/Resolved]
  - Panic reaction [Recovered/Resolved]
